FAERS Safety Report 18226225 (Version 1)
Quarter: 2020Q3

REPORT INFORMATION
  Report Type: Spontaneous
  Country: IN (occurrence: IN)
  Receive Date: 20200903
  Receipt Date: 20200903
  Transmission Date: 20201103
  Serious: Yes (Death)
  Sender: FDA-Public Use
  Company Number: IN-ROCHE-2670675

PATIENT
  Age: 63 Year
  Sex: Female
  Weight: 40 kg

DRUGS (12)
  1. ZYLORIC [Concomitant]
     Active Substance: ALLOPURINOL
     Route: 048
     Dates: start: 20200414, end: 20200418
  2. FORCAN [Concomitant]
     Route: 048
     Dates: start: 20200414, end: 20200420
  3. AMLO [Concomitant]
     Indication: HYPERTENSION
     Route: 048
     Dates: start: 20200414, end: 20200420
  4. GRANISET [Concomitant]
     Indication: VOMITING
  5. DULCOLAXO [Concomitant]
     Indication: CONSTIPATION
     Dosage: ONGOING
     Route: 048
     Dates: start: 20200414
  6. RITUXIMAB. [Suspect]
     Active Substance: RITUXIMAB
     Indication: DIFFUSE LARGE B-CELL LYMPHOMA
     Dosage: 100 MG/ML CONCENTRATE FOR SOLUTION FOR INFUSION,  TOTAL DURATION OF TREATMENT? 8 DAYS,  TOTAL NUMBER
     Route: 042
     Dates: start: 20200413, end: 20200413
  7. GRANISET [Concomitant]
     Indication: NAUSEA
     Route: 048
     Dates: start: 20200414, end: 20200420
  8. STEMETIL [Concomitant]
     Active Substance: PROCHLORPERAZINE
     Indication: VERTIGO
     Route: 048
     Dates: start: 20200414, end: 20200420
  9. WYSOLONE [Concomitant]
     Active Substance: PREDNISOLONE
     Indication: INFLAMMATION
     Route: 048
     Dates: start: 20200414, end: 20200420
  10. PERINORM [Concomitant]
     Indication: NAUSEA
     Route: 048
     Dates: start: 20200414, end: 20200420
  11. PERINORM [Concomitant]
     Indication: VOMITING
  12. ATIVAN [Concomitant]
     Active Substance: LORAZEPAM
     Indication: ANXIETY
     Route: 048
     Dates: start: 20200414, end: 20200420

REACTIONS (1)
  - Death [Fatal]

NARRATIVE: CASE EVENT DATE: 20200420
